FAERS Safety Report 4400893-8 (Version None)
Quarter: 2004Q3

REPORT INFORMATION
  Report Type: 
  Country: None (occurrence: None)
  Receive Date: 20040907
  Receipt Date: 20030728
  Transmission Date: 20050211
  Serious: No
  Sender: FDA-Public Use
  Company Number: US-BRISTOL-MYERS SQUIBB COMPANY-12336475

PATIENT
  Sex: Male

DRUGS (3)
  1. COUMADIN [Suspect]
     Indication: ATRIAL FIBRILLATION
     Dosage: TAKEN EACH EVENING
     Route: 048
  2. SOTALOL HCL [Concomitant]
     Route: 048
  3. NEXIUM [Concomitant]

REACTIONS (1)
  - SENSORY DISTURBANCE [None]
